FAERS Safety Report 11529487 (Version 1)
Quarter: 2015Q3

REPORT INFORMATION
  Report Type: Spontaneous
  Country: US (occurrence: US)
  Receive Date: 20150921
  Receipt Date: 20150921
  Transmission Date: 20151125
  Serious: No
  Sender: FDA-Public Use
  Company Number: US-HORIZON-ACT-0156-2015

PATIENT
  Age: 28 Year
  Sex: Male

DRUGS (7)
  1. METROPOLOL SUCCINATE ER [Concomitant]
  2. ACTIMMUNE [Suspect]
     Active Substance: INTERFERON GAMMA-1B
     Indication: ASPERGILLUS INFECTION
     Dosage: 100 ?G THREE TIMES WEEKLY
     Dates: start: 201302
  3. MINOCYCLINE HCL [Concomitant]
     Active Substance: MINOCYCLINE HYDROCHLORIDE
  4. DIPHENHYDRAMINE HCL [Concomitant]
     Active Substance: DIPHENHYDRAMINE HYDROCHLORIDE
  5. PREDNISONE. [Concomitant]
     Active Substance: PREDNISONE
  6. ITRACONAZOLE. [Concomitant]
     Active Substance: ITRACONAZOLE
  7. MULTIVITAMINS [Concomitant]
     Active Substance: VITAMINS

REACTIONS (2)
  - Off label use [Unknown]
  - Injection site pain [Unknown]
